FAERS Safety Report 6042961-3 (Version None)
Quarter: 2009Q1

REPORT INFORMATION
  Report Type: 
  Country: None (occurrence: None)
  Receive Date: 20090119
  Receipt Date: 20090109
  Transmission Date: 20090719
  Serious: Yes (Other)
  Sender: FDA-Public Use
  Company Number: US-BAYER-200911001GPV

PATIENT

DRUGS (5)
  1. FLUDARABINE PHOSPHATE [Suspect]
     Indication: B-CELL LYMPHOMA
     Route: 065
  2. MITOXANTRONE [Suspect]
     Indication: B-CELL LYMPHOMA
  3. BUSULFAN [Suspect]
     Indication: STEM CELL TRANSPLANT
  4. CYCLOPHOSPHAMIDE [Suspect]
     Indication: STEM CELL TRANSPLANT
  5. ETOPOSIDE [Suspect]
     Indication: STEM CELL TRANSPLANT

REACTIONS (3)
  - ACUTE MYELOID LEUKAEMIA [None]
  - BLOOD STEM CELL HARVEST FAILURE [None]
  - MYELODYSPLASTIC SYNDROME [None]
